FAERS Safety Report 12096619 (Version 1)
Quarter: 2016Q1

REPORT INFORMATION
  Report Type: Other
  Country: US (occurrence: US)
  Receive Date: 20160220
  Receipt Date: 20160220
  Transmission Date: 20160526
  Serious: No
  Sender: FDA-Public Use
  Company Number: US-ACORDA-ACO_109028_2015

PATIENT
  Sex: Female
  Weight: 68.48 kg

DRUGS (3)
  1. AMPYRA [Suspect]
     Active Substance: DALFAMPRIDINE
     Indication: GAIT DISTURBANCE
     Dosage: 10 MG, Q 12 HRS
     Route: 048
     Dates: start: 2013
  2. TECFIDERA [Suspect]
     Active Substance: DIMETHYL FUMARATE
     Dosage: 240 MG, BID
     Route: 048
     Dates: start: 2014, end: 201412
  3. TECFIDERA [Suspect]
     Active Substance: DIMETHYL FUMARATE
     Indication: MULTIPLE SCLEROSIS
     Dosage: 120 MG, BID
     Route: 048
     Dates: start: 2014

REACTIONS (6)
  - Fall [Not Recovered/Not Resolved]
  - Motor dysfunction [Not Recovered/Not Resolved]
  - Flushing [Recovered/Resolved]
  - Vitamin D decreased [Unknown]
  - Pollakiuria [Not Recovered/Not Resolved]
  - Multiple sclerosis [Not Recovered/Not Resolved]
